FAERS Safety Report 6832657-X (Version None)
Quarter: 2010Q3

REPORT INFORMATION
  Report Type: 
  Country: None (occurrence: None)
  Receive Date: 20100712
  Receipt Date: 20070403
  Transmission Date: 20110219
  Serious: No
  Sender: FDA-Public Use
  Company Number: US-PFIZER INC-2007020483

PATIENT
  Sex: Female
  Weight: 89.81 kg

DRUGS (3)
  1. CHANTIX [Suspect]
     Indication: SMOKING CESSATION THERAPY
     Route: 048
     Dates: start: 20070306
  2. ANTICOAGULANTS [Concomitant]
     Route: 048
  3. ANALGESICS [Concomitant]
     Indication: BONE PAIN
     Route: 048

REACTIONS (5)
  - ABDOMINAL DISTENSION [None]
  - CONSTIPATION [None]
  - FLATULENCE [None]
  - INSOMNIA [None]
  - MEDICATION ERROR [None]
